FAERS Safety Report 4587330-8 (Version None)
Quarter: 2005Q1

REPORT INFORMATION
  Report Type: 
  Country: None (occurrence: None)
  Receive Date: 20050215
  Receipt Date: 20050201
  Transmission Date: 20050727
  Serious: Yes (Death)
  Sender: FDA-Public Use
  Company Number: CERZ-10766

PATIENT
  Age: 11 Month
  Sex: Male
  Weight: 10 kg

DRUGS (1)
  1. CEREZYME [Suspect]
     Indication: GAUCHER'S DISEASE
     Dosage: 120 U/KG Q2WKS IV
     Route: 042
     Dates: start: 20050106, end: 20050101

REACTIONS (1)
  - GASTROINTESTINAL HAEMORRHAGE [None]
